FAERS Safety Report 19186862 (Version 1)
Quarter: 2021Q2

REPORT INFORMATION
  Report Type: Other
  Country: TR (occurrence: TR)
  Receive Date: 20210428
  Receipt Date: 20210428
  Transmission Date: 20210717
  Serious: Yes (Hospitalization)
  Sender: FDA-Public Use
  Company Number: TR-AET-000001

PATIENT
  Age: 49 Year
  Sex: Female

DRUGS (8)
  1. DAUNORUBICIN [Concomitant]
     Active Substance: DAUNORUBICIN
     Indication: ACUTE PROMYELOCYTIC LEUKAEMIA
     Dosage: 60 MG/M2/DAY (3 DAYS/DAYS 1,2,3)
  2. CYTOSINE ARABINOSIDE [Concomitant]
     Active Substance: CYTARABINE
     Indication: ACUTE PROMYELOCYTIC LEUKAEMIA
     Dosage: 100 MG/M2/DAY (7 DAYS/ EVERYDAYS)
  3. POSACONAZOLE [Suspect]
     Active Substance: POSACONAZOLE
     Indication: FEBRILE NEUTROPENIA
     Dosage: 300 MG/ DAY
  4. ALL?TRANS RETINOIC ACID [Interacting]
     Active Substance: TRETINOIN
     Indication: ACUTE PROMYELOCYTIC LEUKAEMIA
     Dosage: 45 MG/M2/DAY
  5. ACYCLOVIR. [Suspect]
     Active Substance: ACYCLOVIR
     Indication: PROPHYLAXIS
  6. PIPERACILLIN/TAZOBACTAM [Concomitant]
     Active Substance: PIPERACILLIN SODIUM\TAZOBACTAM SODIUM
     Indication: FEBRILE NEUTROPENIA
  7. DEXAMETHASONE. [Concomitant]
     Active Substance: DEXAMETHASONE
     Indication: ACUTE PROMYELOCYTIC LEUKAEMIA
     Dosage: 10 MG/DOSE TWICE A DAY
  8. LEVOFLOXACIN. [Suspect]
     Active Substance: LEVOFLOXACIN
     Indication: PROPHYLAXIS

REACTIONS (3)
  - Hypercalcaemia [Recovered/Resolved]
  - Hyperbilirubinaemia [Unknown]
  - Drug interaction [Unknown]
